FAERS Safety Report 4563623-5 (Version None)
Quarter: 2005Q1

REPORT INFORMATION
  Report Type: 
  Country: None (occurrence: None)
  Receive Date: 20050128
  Receipt Date: 20050124
  Transmission Date: 20050727
  Serious: Yes (Death, Life-Threatening, Other)
  Sender: FDA-Public Use
  Company Number: PHFR2005GB00625

PATIENT
  Age: 32 None
  Sex: Female
  Weight: 102 kg

DRUGS (9)
  1. CLOZARIL [Suspect]
     Indication: SCHIZOPHRENIA
     Dosage: UNK, UNK
     Route: 048
     Dates: start: 20041112
  2. TRAZODONE HCL [Concomitant]
     Indication: DEPRESSION
     Dosage: 150 MG, QD
     Route: 048
     Dates: start: 20040809
  3. CITALOPRAM [Concomitant]
     Indication: DEPRESSION
     Dosage: 40 MG, QD
     Route: 048
     Dates: start: 20041007
  4. PIRENZEPINE [Concomitant]
     Indication: SALIVARY HYPERSECRETION
     Dosage: 100MG/DAY
     Dates: start: 20041213, end: 20050103
  5. THYROXINE [Concomitant]
     Indication: HYPOTHYROIDISM
     Dosage: 100 UG, BID
     Route: 048
     Dates: start: 20040704
  6. CLONAZEPAM [Concomitant]
     Indication: AGITATION
     Dosage: UNK, UNK
     Route: 048
     Dates: start: 20041224
  7. BECLOMETHASONE DIPROPIONATE [Concomitant]
     Dosage: 100 UG, BID
     Route: 065
  8. QUETIAPINE [Concomitant]
     Route: 065
     Dates: start: 20040802, end: 20041212
  9. ARIPIPRAZOLE [Concomitant]
     Route: 065
     Dates: start: 20040726, end: 20041108

REACTIONS (2)
  - CEREBROVASCULAR ACCIDENT [None]
  - PULMONARY EMBOLISM [None]
